FAERS Safety Report 23964617 (Version 1)
Quarter: 2024Q2

REPORT INFORMATION
  Report Type: Spontaneous
  Country: US (occurrence: US)
  Receive Date: 20240612
  Receipt Date: 20240612
  Transmission Date: 20240716
  Serious: No
  Sender: FDA-Public Use
  Company Number: US-BRISTOL-MYERS SQUIBB COMPANY-2024-094421

PATIENT
  Age: 65 Year
  Sex: Female

DRUGS (3)
  1. REVLIMID [Suspect]
     Active Substance: LENALIDOMIDE
     Indication: Plasma cell myeloma in remission
     Route: 048
  2. DARZALEX [Suspect]
     Active Substance: DARATUMUMAB
     Indication: Plasma cell myeloma
     Dosage: TOTAL DOSE- 1000 MG ONCE IN A WEEK
     Route: 042
     Dates: start: 20240214, end: 20240214
  3. DARZALEX [Suspect]
     Active Substance: DARATUMUMAB
     Dosage: TOTAL DOSE- 1000 MG ONCE IN A WEEK
     Route: 042
     Dates: start: 20240214, end: 20240214

REACTIONS (2)
  - Cough [Unknown]
  - Throat irritation [Unknown]
